FAERS Safety Report 8932003 (Version 2)
Quarter: 2012Q4

REPORT INFORMATION
  Report Type: 
  Country: US (occurrence: US)
  Receive Date: 20121121
  Receipt Date: 20121212
  Transmission Date: 20130627
  Serious: Yes (Death)
  Sender: FDA-Public Use
  Company Number: US-ASTELLAS-1096184

PATIENT
  Sex: Male

DRUGS (3)
  1. TARCEVA [Suspect]
     Indication: LUNG NEOPLASM MALIGNANT
     Route: 048
     Dates: start: 200810, end: 20090205
  2. TARCEVA [Suspect]
     Indication: BONE NEOPLASM MALIGNANT
  3. TARCEVA [Suspect]
     Indication: BONE NEOPLASM MALIGNANT

REACTIONS (2)
  - Lung neoplasm malignant [Fatal]
  - Pleural effusion [Fatal]
